FAERS Safety Report 7213534-1 (Version None)
Quarter: 2011Q1

REPORT INFORMATION
  Report Type: 
  Country: None (occurrence: None)
  Receive Date: 20110106
  Receipt Date: 20101227
  Transmission Date: 20110831
  Serious: Yes (Other)
  Sender: FDA-Public Use
  Company Number: US-GENZYME-CAMP-1001048

PATIENT

DRUGS (8)
  1. CAMPATH [Suspect]
     Indication: BONE MARROW CONDITIONING REGIMEN
     Dosage: 20 MG, QD FROM DAY -7 TO DAY -3
     Route: 065
  2. TACROLIMUS [Concomitant]
     Indication: IMMUNOSUPPRESSANT DRUG THERAPY
     Dosage: UNK BEGINNING ON DAY -2
     Route: 042
  3. TACROLIMUS [Concomitant]
     Dosage: UNK FROM ENGRAFTMENT UNTIL AT LEAST DAY 100
     Route: 048
  4. CLONAZEPAM [Concomitant]
     Indication: CONVULSION PROPHYLAXIS
     Dosage: 1 MG, UNK
     Route: 065
  5. BUSULFAN [Suspect]
     Indication: BONE MARROW CONDITIONING REGIMEN
     Dosage: 0.5 MG/KG, ONCE
     Route: 042
  6. BUSULFAN [Suspect]
     Dosage: ON DAY -6 THROUGH DAY -3
     Route: 042
  7. CLONAZEPAM [Concomitant]
     Dosage: 1 MG, TID FROM DAY -7 TO DAY -2
     Route: 065
  8. FLUDARA [Suspect]
     Indication: BONE MARROW CONDITIONING REGIMEN
     Dosage: 25 MG/M2, QD FROM DAY -7 TO DAY -3
     Route: 065

REACTIONS (1)
  - VENOOCCLUSIVE LIVER DISEASE [None]
